FAERS Safety Report 4516214-6 (Version None)
Quarter: 2004Q4

REPORT INFORMATION
  Report Type: 
  Country: None (occurrence: None)
  Receive Date: 20041005
  Receipt Date: 20040217
  Transmission Date: 20050328
  Serious: Yes (Other)
  Sender: FDA-Public Use
  Company Number: US-JNJFOC-20040203753

PATIENT
  Age: 8 Year
  Sex: Male
  Weight: 20.8655 kg

DRUGS (3)
  1. CONCERTA [Suspect]
     Indication: ATTENTION DEFICIT/HYPERACTIVITY DISORDER
     Dosage: 18 MG, 1 IN 1 DAY, ORAL;  54 MG, 1 IN 1 DAY,ORAL
     Route: 048
     Dates: start: 20001001, end: 20020101
  2. CONCERTA [Suspect]
     Indication: ATTENTION DEFICIT/HYPERACTIVITY DISORDER
     Dosage: 18 MG, 1 IN 1 DAY, ORAL;  54 MG, 1 IN 1 DAY,ORAL
     Route: 048
     Dates: start: 20020101
  3. CYPROHEPTADINE HCL [Concomitant]

REACTIONS (3)
  - AGGRESSION [None]
  - ANOREXIA [None]
  - INSOMNIA [None]
